FAERS Safety Report 6914542-8 (Version None)
Quarter: 2010Q3

REPORT INFORMATION
  Report Type: 
  Country: None (occurrence: None)
  Receive Date: 20100809
  Receipt Date: 20100729
  Transmission Date: 20110219
  Serious: Yes (Life-Threatening, Hospitalization, Other)
  Sender: FDA-Public Use
  Company Number: TR-ELI_LILLY_AND_COMPANY-TR201007007852

PATIENT
  Age: 29 Year
  Sex: Male

DRUGS (3)
  1. HUMULIN N [Suspect]
     Dosage: 600 U, UNKNOWN
     Route: 058
  2. HUMULIN 70/30 [Suspect]
     Dosage: 1500 U, UNKNOWN
     Route: 058
  3. REGULAR INSULIN [Suspect]

REACTIONS (9)
  - ALANINE AMINOTRANSFERASE INCREASED [None]
  - ASPARTATE AMINOTRANSFERASE INCREASED [None]
  - HEPATITIS TOXIC [None]
  - HYPERINSULINAEMIA [None]
  - HYPOGLYCAEMIA [None]
  - INSULIN C-PEPTIDE DECREASED [None]
  - LOSS OF CONSCIOUSNESS [None]
  - OVERDOSE [None]
  - SUICIDE ATTEMPT [None]
